FAERS Safety Report 14080621 (Version 1)
Quarter: 2017Q4

REPORT INFORMATION
  Report Type: Spontaneous
  Country: US (occurrence: US)
  Receive Date: 20171012
  Receipt Date: 20171012
  Transmission Date: 20180321
  Serious: Yes (Other)
  Sender: FDA-Public Use
  Company Number: US-SA-2017SA195720

PATIENT
  Sex: Male

DRUGS (1)
  1. LANTUS [Suspect]
     Active Substance: INSULIN GLARGINE
     Dosage: DOSE:50 UNIT(S)
     Route: 051
     Dates: end: 2017

REACTIONS (2)
  - Neoplasm malignant [Unknown]
  - Blood glucose increased [Recovering/Resolving]
